FAERS Safety Report 24088967 (Version 1)
Quarter: 2024Q3

REPORT INFORMATION
  Report Type: Spontaneous
  Country: FR (occurrence: FR)
  Receive Date: 20240715
  Receipt Date: 20240715
  Transmission Date: 20241017
  Serious: Yes (Hospitalization)
  Sender: TEVA
  Company Number: None

PATIENT
  Age: 86 Year
  Sex: Male
  Weight: 60 kg

DRUGS (6)
  1. PROPRANOLOL [Suspect]
     Active Substance: PROPRANOLOL HYDROCHLORIDE
     Indication: Cardiovascular event prophylaxis
     Route: 048
     Dates: start: 20240531
  2. AMIKACIN SULFATE [Suspect]
     Active Substance: AMIKACIN SULFATE
     Indication: Infection
     Dosage: TIME INTERVAL: TOTAL
     Route: 042
     Dates: start: 20240508, end: 20240508
  3. AMIKACIN SULFATE [Suspect]
     Active Substance: AMIKACIN SULFATE
     Indication: Infection
     Dosage: TIME INTERVAL: TOTAL
     Route: 042
     Dates: start: 20240602, end: 20240602
  4. AMIKACIN SULFATE [Suspect]
     Active Substance: AMIKACIN SULFATE
     Indication: Infection
     Dosage: TIME INTERVAL: TOTAL
     Route: 042
     Dates: start: 20240606, end: 20240606
  5. INNOHEP [Suspect]
     Active Substance: TINZAPARIN SODIUM
     Indication: Superficial vein thrombosis
     Route: 058
     Dates: start: 20240523, end: 20240605
  6. ERTAPENEM [Suspect]
     Active Substance: ERTAPENEM
     Indication: Infection
     Route: 042
     Dates: start: 20240527, end: 20240605

REACTIONS (1)
  - Confusional state [Recovering/Resolving]

NARRATIVE: CASE EVENT DATE: 20240605
